FAERS Safety Report 7304314-7 (Version None)
Quarter: 2011Q1

REPORT INFORMATION
  Report Type: 
  Country: None (occurrence: None)
  Receive Date: 20110221
  Receipt Date: 20110208
  Transmission Date: 20110831
  Serious: Yes (Other)
  Sender: FDA-Public Use
  Company Number: US-BAYER-2011-016261

PATIENT
  Sex: Female
  Weight: 56.689 kg

DRUGS (2)
  1. YAZ [Suspect]
     Indication: ORAL CONTRACEPTION
     Dosage: UNK, QD
     Route: 048
     Dates: start: 20070101, end: 20080101
  2. YASMIN [Suspect]
     Indication: ORAL CONTRACEPTION
     Dosage: UNK UNK, QD
     Route: 048
     Dates: start: 20070101, end: 20080101

REACTIONS (3)
  - OEDEMA PERIPHERAL [None]
  - LIMB INJURY [None]
  - DEEP VEIN THROMBOSIS [None]
